FAERS Safety Report 19325195 (Version 1)
Quarter: 2021Q2

REPORT INFORMATION
  Report Type: Spontaneous
  Country: US (occurrence: US)
  Receive Date: 20210528
  Receipt Date: 20210528
  Transmission Date: 20210717
  Serious: Yes (Hospitalization, Other)
  Sender: FDA-Public Use
  Company Number: US-HIKMA PHARMACEUTICALS USA INC.-US-H14001-21-02420

PATIENT
  Age: 79 Year
  Sex: Male

DRUGS (3)
  1. DEPAKOTE [Suspect]
     Active Substance: DIVALPROEX SODIUM
     Indication: MANIA
     Dosage: UNKNOWN
     Route: 065
  2. LITHIUM. [Suspect]
     Active Substance: LITHIUM
     Indication: MANIA
     Dosage: UNKNOWN
     Route: 065
  3. LITHIUM. [Suspect]
     Active Substance: LITHIUM
     Dosage: UNKNOWN; RESTARTED AND DOSE REDUCED
     Route: 065

REACTIONS (16)
  - Behaviour disorder [Unknown]
  - Thinking abnormal [Unknown]
  - Confusional state [Unknown]
  - Polyneuropathy [Unknown]
  - Muscular weakness [Unknown]
  - Speech disorder [Unknown]
  - Mental status changes [Unknown]
  - Salivary hypersecretion [Unknown]
  - Ataxia [Unknown]
  - Tremor [Unknown]
  - Agitation [Unknown]
  - Sexually inappropriate behaviour [Not Recovered/Not Resolved]
  - Cognitive disorder [Unknown]
  - Affective disorder [Unknown]
  - Gait disturbance [Unknown]
  - Toxicity to various agents [Unknown]
